FAERS Safety Report 8816439 (Version 1)
Quarter: 2012Q4

REPORT INFORMATION
  Report Type: Spontaneous
  Country: CA (occurrence: None)
  Receive Date: 20120927
  Receipt Date: 20120927
  Transmission Date: 20130627
  Serious: Yes (Disabling)
  Sender: FDA-Public Use
  Company Number: 2012AP002998

PATIENT
  Age: 76 Year
  Sex: Female

DRUGS (6)
  1. ATORVASTATIN CALCIUM [Suspect]
     Indication: HIGH CHOLESTEROL
     Dosage: PM
     Dates: start: 20101025, end: 20111109
  2. OLMETEC (OLMESARTAN MEDOXOMIL) [Concomitant]
  3. METOPROLOL [Concomitant]
  4. ACETYLSALICYLIC ACID [Concomitant]
  5. ZOCOR [Suspect]
  6. OMEPRAZOLE [Concomitant]

REACTIONS (3)
  - Musculoskeletal pain [None]
  - Myalgia [None]
  - Walking disability [None]
